FAERS Safety Report 21579821 (Version 1)
Quarter: 2022Q4

REPORT INFORMATION
  Report Type: Spontaneous
  Country: IT (occurrence: IT)
  Receive Date: 20221110
  Receipt Date: 20221110
  Transmission Date: 20230113
  Serious: Yes (Other)
  Sender: FDA-Public Use
  Company Number: IT-009507513-2208ITA000444

PATIENT
  Age: 66 Year
  Sex: Female

DRUGS (19)
  1. CARBOPLATIN [Suspect]
     Active Substance: CARBOPLATIN
     Indication: Cervix neoplasm
     Dosage: UNK
     Dates: end: 202206
  2. CARBOPLATIN [Suspect]
     Active Substance: CARBOPLATIN
     Dosage: 2ND CYCLE
     Dates: start: 202207
  3. CARBOPLATIN [Suspect]
     Active Substance: CARBOPLATIN
     Dosage: UNK UNK, EVERY 3 WEEKS
     Dates: start: 20220530, end: 20221003
  4. PACLITAXEL [Suspect]
     Active Substance: PACLITAXEL
     Indication: Cervix neoplasm
     Dosage: UNK
     Dates: start: 20220530, end: 20220530
  5. PEMBROLIZUMAB [Suspect]
     Active Substance: PEMBROLIZUMAB
     Indication: Cervix neoplasm
     Dosage: UNK
     Dates: end: 202206
  6. PEMBROLIZUMAB [Suspect]
     Active Substance: PEMBROLIZUMAB
     Dosage: 200 MILLIGRAM, EVERY 21 DAYS, 1ST CYCLE
     Dates: start: 20220620, end: 20220620
  7. PEMBROLIZUMAB [Suspect]
     Active Substance: PEMBROLIZUMAB
     Dosage: 2ND CYCLE
     Dates: start: 202207
  8. PEMBROLIZUMAB [Suspect]
     Active Substance: PEMBROLIZUMAB
     Dosage: 200 MILLIGRAM, EVERY 21 DAYS
     Dates: start: 20220711, end: 20220711
  9. PEMBROLIZUMAB [Suspect]
     Active Substance: PEMBROLIZUMAB
     Dosage: 200 MILLIGRAM, EVERY 21 DAYS
     Dates: start: 20220801, end: 20220801
  10. PEMBROLIZUMAB [Suspect]
     Active Substance: PEMBROLIZUMAB
     Dosage: 200 MILLIGRAM, EVERY 21 DAYS
     Dates: start: 20220822, end: 20220822
  11. PEMBROLIZUMAB [Suspect]
     Active Substance: PEMBROLIZUMAB
     Dosage: 200 MILLIGRAM, EVERY 21 DAYS
     Dates: start: 20220912, end: 20220912
  12. PEMBROLIZUMAB [Suspect]
     Active Substance: PEMBROLIZUMAB
     Dosage: 200 MILLIGRAM, EVERY 21 DAYS
     Dates: start: 20221003, end: 20221003
  13. TAXOL [Suspect]
     Active Substance: PACLITAXEL
     Indication: Cervix neoplasm
     Dosage: UNK
     Dates: end: 202206
  14. TAXOL [Suspect]
     Active Substance: PACLITAXEL
     Dosage: 2ND CYCLE
     Dates: start: 202207
  15. TAXOL [Suspect]
     Active Substance: PACLITAXEL
     Dosage: UNK, EVERY 3 WEEKS
     Dates: start: 20220620, end: 20221003
  16. LYRICA [Concomitant]
     Active Substance: PREGABALIN
     Dosage: 75 MILLIGRAM, BID
  17. RAMIPRIL [Concomitant]
     Active Substance: RAMIPRIL
     Dosage: 5 MILLIGRAM
  18. EZETIMIBE\ROSUVASTATIN CALCIUM [Concomitant]
     Active Substance: EZETIMIBE\ROSUVASTATIN CALCIUM
     Dosage: UNK
  19. BISOPROLOL [Concomitant]
     Active Substance: BISOPROLOL
     Dosage: 5 MILLIGRAM, ONCE

REACTIONS (3)
  - Rash [Recovering/Resolving]
  - Immune-mediated dermatitis [Recovering/Resolving]
  - Immune-mediated dermatitis [Recovered/Resolved]

NARRATIVE: CASE EVENT DATE: 20220601
